FAERS Safety Report 13861312 (Version 5)
Quarter: 2017Q3

REPORT INFORMATION
  Report Type: Spontaneous
  Country: BR (occurrence: BR)
  Receive Date: 20170811
  Receipt Date: 20170831
  Transmission Date: 20171127
  Serious: Yes (Death)
  Sender: FDA-Public Use
  Company Number: BR-JNJFOC-20170806918

PATIENT

DRUGS (1)
  1. REMICADE [Suspect]
     Active Substance: INFLIXIMAB
     Indication: CROHN^S DISEASE
     Route: 042

REACTIONS (4)
  - Drug ineffective [Unknown]
  - Death [Fatal]
  - Suspected counterfeit product [Unknown]
  - Adverse event [Unknown]
